FAERS Safety Report 15947977 (Version 1)
Quarter: 2019Q1

REPORT INFORMATION
  Report Type: Spontaneous
  Country: US (occurrence: US)
  Receive Date: 20190212
  Receipt Date: 20190212
  Transmission Date: 20190417
  Serious: Yes (Hospitalization, Other)
  Sender: FDA-Public Use
  Company Number: US-AUROBINDO-AUR-APL-2019-006403

PATIENT

DRUGS (10)
  1. METRONIDAZOLE. [Suspect]
     Active Substance: METRONIDAZOLE
     Indication: ANTIBIOTIC THERAPY
     Dosage: 500 MILLIGRAM, ONCE A DAY
     Route: 065
  2. METRONIDAZOLE. [Suspect]
     Active Substance: METRONIDAZOLE
     Dosage: 500 MILLIGRAM, 3 TIMES A DAY, DAY 3 AND DAY 4
     Route: 065
  3. VANCOMYCIN [Suspect]
     Active Substance: VANCOMYCIN
     Dosage: 1000 MILLIGRAM, ONCE POST DIALYSIS
  4. CEFEPIME [Suspect]
     Active Substance: CEFEPIME HYDROCHLORIDE
     Indication: ANTIBIOTIC THERAPY
     Dosage: 1 GRAM, ONCE A DAY, FROM DAY 1 TO DAY 4
     Route: 065
  5. ACICLOVIR [Suspect]
     Active Substance: ACYCLOVIR
     Dosage: 800 UNK, FOUR TIMES/DAY
     Route: 048
  6. VANCOMYCIN [Suspect]
     Active Substance: VANCOMYCIN
     Indication: ANTIBIOTIC THERAPY
     Dosage: 1000 MILLIGRAM, ONCE A DAY,
     Route: 065
  7. ACICLOVIR [Suspect]
     Active Substance: ACYCLOVIR
     Indication: HERPES DERMATITIS
     Dosage: 800 MILLIGRAM, 5 TIMES A DAY FROM DAY 1 TO DAY 3
     Route: 048
  8. ACICLOVIR [Suspect]
     Active Substance: ACYCLOVIR
     Dosage: 5MG/KG ON DAY 4 AND DAY 5
     Route: 042
  9. VANCOMYCIN [Suspect]
     Active Substance: VANCOMYCIN
     Dosage: 750 MG ONCE POST DIALYSIS, ON DAY 1,2, 5,7
  10. CEFTRIAXONE. [Suspect]
     Active Substance: CEFTRIAXONE
     Indication: ANTIBIOTIC THERAPY
     Dosage: 2 GRAM, ONCE A DAY, FROM DAY 5 TO DAY 9
     Route: 065

REACTIONS (11)
  - Neurotoxicity [Recovered/Resolved]
  - Illiteracy [Unknown]
  - Dizziness [Unknown]
  - Diarrhoea [Unknown]
  - Erythema [Unknown]
  - Myositis [Unknown]
  - Pain [Unknown]
  - Lethargy [Unknown]
  - Myoclonus [Recovered/Resolved]
  - Disorientation [Unknown]
  - Swelling [Unknown]
